FAERS Safety Report 8342694-4 (Version None)
Quarter: 2012Q2

REPORT INFORMATION
  Report Type: 
  Country: None (occurrence: None)
  Receive Date: 20120502
  Receipt Date: 20120416
  Transmission Date: 20120825
  Serious: Yes (Other)
  Sender: FDA-Public Use
  Company Number: 2012AP001101

PATIENT
  Age: 61 Year
  Sex: Male

DRUGS (11)
  1. HYDROMORPHONE HCL [Suspect]
     Indication: PRODUCT USED FOR UNKNOWN INDICATION
     Dosage: 16 MG;PO;QD
     Route: 048
  2. CISPLATIN [Concomitant]
  3. DEXTROSE 5% [Concomitant]
  4. CETUXIMAB (CETUXIMAB) [Concomitant]
  5. LIPIDS NOS (LIPIDS NOS) [Concomitant]
  6. AMINO ACIDS (AMINO ACIDS) [Concomitant]
  7. LEVOFLOXACIN [Suspect]
     Indication: BACTERIAL INFECTION
     Dosage: 500 MG;PO;QD
     Route: 048
  8. LEVOFLOXACIN [Suspect]
     Indication: PYREXIA
     Dosage: 500 MG;PO;QD
     Route: 048
  9. GLYBURIDE AND METFORMIN HYDROCHLORIDE [Suspect]
     Indication: TYPE 2 DIABETES MELLITUS
     Dosage: PO
     Route: 048
  10. NADROPARIN (NADROPARIN) [Suspect]
     Indication: DEEP VEIN THROMBOSIS
     Dosage: SC
     Route: 058
  11. FLUOROURACIL [Concomitant]

REACTIONS (2)
  - HYPOGLYCAEMIC COMA [None]
  - DRUG INTERACTION [None]
